FAERS Safety Report 21913097 (Version 1)
Quarter: 2023Q1

REPORT INFORMATION
  Report Type: Spontaneous
  Country: US (occurrence: US)
  Receive Date: 20230125
  Receipt Date: 20230125
  Transmission Date: 20230417
  Serious: No
  Sender: FDA-Public Use
  Company Number: US-ALLERGAN-2241341US

PATIENT

DRUGS (4)
  1. BOTOX [Suspect]
     Active Substance: ONABOTULINUMTOXINA
     Indication: Headache
     Dosage: UNK UNK, SINGLE
  2. NURTEC ODT [Suspect]
     Active Substance: RIMEGEPANT SULFATE
     Indication: Headache
  3. GABAPENTIN [Suspect]
     Active Substance: GABAPENTIN
     Indication: Headache
  4. UNSPECIFIED INGREDIENT [Suspect]
     Active Substance: UNSPECIFIED INGREDIENT
     Indication: Headache

REACTIONS (1)
  - Drug ineffective [Unknown]
